FAERS Safety Report 8455885-9 (Version None)
Quarter: 2012Q2

REPORT INFORMATION
  Report Type: 
  Country: None (occurrence: None)
  Receive Date: 20120323
  Receipt Date: 20110919
  Transmission Date: 20120825
  Serious: Yes (Hospitalization)
  Sender: FDA-Public Use
  Company Number: 163-21880-11092375

PATIENT
  Age: 77 Year
  Sex: Male
  Weight: 107.0489 kg

DRUGS (1)
  1. REVLIMID [Suspect]
     Indication: MULTIPLE MYELOMA
     Dosage: 5 MG, DAILY FOR 21 DAYS, 7 DAYS OFF, PO
     Route: 048
     Dates: start: 20110701, end: 20110901

REACTIONS (4)
  - WHITE BLOOD CELL COUNT DECREASED [None]
  - DEHYDRATION [None]
  - RENAL IMPAIRMENT [None]
  - DECREASED APPETITE [None]
